FAERS Safety Report 13294161 (Version 3)
Quarter: 2017Q2

REPORT INFORMATION
  Report Type: Report from Study
  Country: None (occurrence: US)
  Receive Date: 20170303
  Receipt Date: 20170607
  Transmission Date: 20170830
  Serious: Yes (Other)
  Sender: FDA-Public Use
  Company Number: US-ABBVIE-17K-163-1864641-00

PATIENT
  Age: 76 Year
  Sex: Female

DRUGS (1)
  1. HUMIRA [Suspect]
     Active Substance: ADALIMUMAB
     Indication: RHEUMATOID ARTHRITIS
     Route: 058

REACTIONS (6)
  - Erythema [Unknown]
  - Vaginal infection [Unknown]
  - Joint stiffness [Unknown]
  - Urinary tract infection [Recovered/Resolved]
  - Ureteric obstruction [Unknown]
  - Joint swelling [Unknown]

NARRATIVE: CASE EVENT DATE: 201702
